FAERS Safety Report 15792844 (Version 2)
Quarter: 2019Q1

REPORT INFORMATION
  Report Type: Spontaneous
  Country: US (occurrence: US)
  Receive Date: 20190107
  Receipt Date: 20190326
  Transmission Date: 20190417
  Serious: No
  Sender: FDA-Public Use
  Company Number: US-GLENMARK PHARMACEUTICALS-2018GMK038663

PATIENT

DRUGS (1)
  1. ESTRADIOL VAGINAL INSERTS USP [Suspect]
     Active Substance: ESTRADIOL
     Indication: VULVOVAGINAL DRYNESS
     Dosage: STARTED TAKING IT ONE A WEEK AND THEN TWICE A WEEK
     Route: 067

REACTIONS (3)
  - No adverse event [Unknown]
  - Product dose omission [Unknown]
  - Device issue [Unknown]
